FAERS Safety Report 14289842 (Version 2)
Quarter: 2018Q2

REPORT INFORMATION
  Report Type: Spontaneous
  Country: US (occurrence: US)
  Receive Date: 20171215
  Receipt Date: 20180628
  Transmission Date: 20180711
  Serious: Yes (Hospitalization, Other)
  Sender: FDA-Public Use
  Company Number: US-BRISTOL-MYERS SQUIBB COMPANY-BMS-2017-112379

PATIENT
  Age: 71 Year
  Sex: Female

DRUGS (1)
  1. SPRYCEL [Suspect]
     Active Substance: DASATINIB
     Indication: MYELOID LEUKAEMIA
     Dosage: 20 MG, QD
     Route: 048
     Dates: start: 20170512

REACTIONS (7)
  - Drug intolerance [Unknown]
  - Somnolence [Unknown]
  - Pyrexia [Recovering/Resolving]
  - Prescribed underdose [Unknown]
  - Retching [Unknown]
  - Hospitalisation [Unknown]
  - Vomiting [Unknown]

NARRATIVE: CASE EVENT DATE: 20180618
